FAERS Safety Report 5618821-6 (Version None)
Quarter: 2008Q1

REPORT INFORMATION
  Report Type: 
  Country: None (occurrence: None)
  Receive Date: 20080207
  Receipt Date: 20080125
  Transmission Date: 20080703
  Serious: Yes (Death, Other)
  Sender: FDA-Public Use
  Company Number: IT-ELI_LILLY_AND_COMPANY-IT200801005647

PATIENT
  Age: 37 Year
  Sex: Male

DRUGS (3)
  1. XIGRIS [Suspect]
     Indication: STAPHYLOCOCCAL SEPSIS
     Dosage: 5 MG, UNKNOWN
     Dates: start: 20040930, end: 20041003
  2. XIGRIS [Suspect]
     Dosage: 20 MG, UNKNOWN
     Dates: start: 20040930, end: 20041003
  3. XIGRIS [Suspect]
     Dosage: UNK, UNKNOWN
     Dates: start: 20040101

REACTIONS (4)
  - DEATH [None]
  - HAEMOGLOBIN DECREASED [None]
  - HAEMORRHAGE [None]
  - PLATELET COUNT DECREASED [None]
